FAERS Safety Report 15048029 (Version 1)
Quarter: 2018Q2

REPORT INFORMATION
  Report Type: Report from Study
  Country: None (occurrence: US)
  Receive Date: 20180622
  Receipt Date: 20180622
  Transmission Date: 20180711
  Serious: Yes (Other)
  Sender: FDA-Public Use
  Company Number: US-ABBVIE-17K-163-2144793-00

PATIENT
  Age: 52 Year
  Sex: Female

DRUGS (1)
  1. HUMIRA [Suspect]
     Active Substance: ADALIMUMAB
     Indication: CROHN^S DISEASE
     Route: 058
     Dates: start: 201707

REACTIONS (37)
  - Angiopathy [Not Recovered/Not Resolved]
  - Anal incontinence [Not Recovered/Not Resolved]
  - Bedridden [Not Recovered/Not Resolved]
  - Myalgia [Unknown]
  - Dyspnoea [Unknown]
  - Malaise [Unknown]
  - Nervous system disorder [Not Recovered/Not Resolved]
  - Vision blurred [Unknown]
  - Chest discomfort [Unknown]
  - Fibromyalgia [Not Recovered/Not Resolved]
  - Drug ineffective [Not Recovered/Not Resolved]
  - Lymphadenopathy [Unknown]
  - Pelvic pain [Unknown]
  - Headache [Unknown]
  - Inappropriate schedule of drug administration [Unknown]
  - Oropharyngeal pain [Unknown]
  - Cogwheel rigidity [Unknown]
  - Memory impairment [Unknown]
  - Encephalitis autoimmune [Unknown]
  - Arthralgia [Unknown]
  - Hot flush [Unknown]
  - Rhinorrhoea [Unknown]
  - Rash [Unknown]
  - Parkinson^s disease [Unknown]
  - Bone pain [Unknown]
  - Lupus-like syndrome [Not Recovered/Not Resolved]
  - Adverse event [Unknown]
  - Post lumbar puncture syndrome [Unknown]
  - Cognitive disorder [Not Recovered/Not Resolved]
  - Middle ear effusion [Unknown]
  - Cerebrospinal fluid leakage [Unknown]
  - Fatigue [Not Recovered/Not Resolved]
  - Tremor [Unknown]
  - Fatigue [Unknown]
  - Blood glucose decreased [Unknown]
  - Blood albumin decreased [Unknown]
  - Lumbar puncture abnormal [Unknown]

NARRATIVE: CASE EVENT DATE: 201707
